FAERS Safety Report 8963173 (Version 3)
Quarter: 2013Q1

REPORT INFORMATION
  Report Type: Spontaneous
  Country: JP (occurrence: JP)
  Receive Date: 20121214
  Receipt Date: 20130111
  Transmission Date: 20140127
  Serious: Yes (Hospitalization)
  Sender: FDA-Public Use
  Company Number: JP-VERTEX PHARMACEUTICALS INC.-2012-026087

PATIENT
  Age: 59 Year
  Sex: Female

DRUGS (11)
  1. TELAVIC [Suspect]
     Indication: CHRONIC HEPATITIS C
     Dosage: 2250 MG, QD
     Route: 048
     Dates: start: 20121025, end: 20121112
  2. TELAVIC [Suspect]
     Dosage: 1500 MG, QD
     Route: 048
     Dates: start: 20121113, end: 20121203
  3. REBETOL [Suspect]
     Indication: CHRONIC HEPATITIS C
     Dosage: 400 MG, QD
     Route: 048
     Dates: start: 20121025, end: 20121112
  4. REBETOL [Suspect]
     Dosage: 400 MG, QD
     Route: 048
     Dates: start: 20121113, end: 20121119
  5. REBETOL [Suspect]
     Dosage: 200 MG, QD
     Route: 048
     Dates: start: 20121120, end: 20121203
  6. REBETOL [Suspect]
     Dosage: 400 MG, QD
     Route: 048
     Dates: start: 20121204, end: 20121209
  7. PEGINTRON                          /01543001/ [Suspect]
     Indication: CHRONIC HEPATITIS C
     Dosage: 1.43 ?G/KG, QW
     Route: 058
     Dates: start: 20121025, end: 20121204
  8. XYZAL [Concomitant]
     Dosage: 5 MG, QD
     Route: 048
     Dates: start: 20121102
  9. GASMOTIN [Concomitant]
     Dosage: 15 MG, QD
     Route: 048
     Dates: start: 20121102
  10. METHYCOBAL [Concomitant]
     Dosage: 1500 ?G, QD
     Route: 048
     Dates: start: 20121102
  11. BEZATATE [Concomitant]
     Dosage: 200 MG, QD
     Route: 048
     Dates: start: 20121102

REACTIONS (3)
  - Depression [Not Recovered/Not Resolved]
  - Blood creatine phosphokinase increased [Unknown]
  - Rash [Not Recovered/Not Resolved]
